FAERS Safety Report 25027607 (Version 2)
Quarter: 2025Q1

REPORT INFORMATION
  Report Type: Spontaneous
  Country: US (occurrence: US)
  Receive Date: 20250301
  Receipt Date: 20250301
  Transmission Date: 20250408
  Serious: No
  Sender: SANOFI AVENTIS
  Company Number: US-SA-2025SA001203

PATIENT
  Age: 55 Year
  Sex: Female

DRUGS (39)
  1. DUPIXENT [Suspect]
     Active Substance: DUPILUMAB
     Indication: Asthma
     Dosage: 300 MG, QOW
     Route: 058
     Dates: start: 20240110
  2. CROMOLYN SODIUM [Concomitant]
     Active Substance: CROMOLYN SODIUM
  3. LACTULOSE [Concomitant]
     Active Substance: LACTULOSE
  4. PREDNISONE [Concomitant]
     Active Substance: PREDNISONE
  5. METFORMIN HYDROCHLORIDE [Concomitant]
     Active Substance: METFORMIN HYDROCHLORIDE
  6. NAPROXEN [Concomitant]
     Active Substance: NAPROXEN
  7. TRAZODONE [Concomitant]
     Active Substance: TRAZODONE HYDROCHLORIDE
  8. HYDRALAZINE HYDROCHLORIDE [Concomitant]
     Active Substance: HYDRALAZINE HYDROCHLORIDE
  9. TRELEGY ELLIPTA [Concomitant]
     Active Substance: FLUTICASONE FUROATE\UMECLIDINIUM BROMIDE\VILANTEROL TRIFENATATE
  10. ATORVASTATIN CALCIUM [Concomitant]
     Active Substance: ATORVASTATIN CALCIUM
  11. SINGULAIR [Concomitant]
     Active Substance: MONTELUKAST SODIUM
  12. FAMOTIDINE [Concomitant]
     Active Substance: FAMOTIDINE
  13. IBUPROFEN [Concomitant]
     Active Substance: IBUPROFEN
  14. FLUCONAZOLE [Concomitant]
     Active Substance: FLUCONAZOLE
  15. LORAZEPAM [Concomitant]
     Active Substance: LORAZEPAM
  16. MOMETASONE FUROATE [Concomitant]
     Active Substance: MOMETASONE FUROATE
  17. NASACORT [Concomitant]
     Active Substance: TRIAMCINOLONE ACETONIDE
  18. METHOCARBAMOL [Concomitant]
     Active Substance: METHOCARBAMOL
  19. ESTRADIOL [Concomitant]
     Active Substance: ESTRADIOL
  20. DULOXETINE HYDROCHLORIDE [Concomitant]
     Active Substance: DULOXETINE HYDROCHLORIDE
  21. GABAPENTIN [Concomitant]
     Active Substance: GABAPENTIN
  22. ZOLOFT [Concomitant]
     Active Substance: SERTRALINE HYDROCHLORIDE
  23. IPRATROPIUM BROMIDE [Concomitant]
     Active Substance: IPRATROPIUM BROMIDE
  24. OMEPRAZOLE [Concomitant]
     Active Substance: OMEPRAZOLE
  25. AZITHROMYCIN [Concomitant]
     Active Substance: AZITHROMYCIN
  26. VENTOLIN [Concomitant]
     Active Substance: ALBUTEROL SULFATE
  27. SAXENDA [Concomitant]
     Active Substance: LIRAGLUTIDE
  28. BENZONATATE [Concomitant]
     Active Substance: BENZONATATE
  29. SUCRALFATE [Concomitant]
     Active Substance: SUCRALFATE
  30. FASENRA [Concomitant]
     Active Substance: BENRALIZUMAB
  31. PANTOPRAZOLE SODIUM [Concomitant]
     Active Substance: PANTOPRAZOLE SODIUM
  32. OXYBUTYNIN CHLORIDE [Concomitant]
     Active Substance: OXYBUTYNIN CHLORIDE
  33. AMITRIPTYLINE [Concomitant]
     Active Substance: AMITRIPTYLINE
  34. VENTOLIN HFA [Concomitant]
     Active Substance: ALBUTEROL SULFATE
  35. DULOXETINE [Concomitant]
     Active Substance: DULOXETINE
  36. FLUCONAZOLE [Concomitant]
     Active Substance: FLUCONAZOLE
  37. GABAPENTIN [Concomitant]
     Active Substance: GABAPENTIN
  38. OXYBUTYNIN [Concomitant]
     Active Substance: OXYBUTYNIN
  39. PREDNISONE [Concomitant]
     Active Substance: PREDNISONE

REACTIONS (2)
  - Infection [Not Recovered/Not Resolved]
  - Impaired quality of life [Not Recovered/Not Resolved]

NARRATIVE: CASE EVENT DATE: 20250101
